FAERS Safety Report 7067332-2 (Version None)
Quarter: 2010Q4

REPORT INFORMATION
  Report Type: 
  Country: None (occurrence: None)
  Receive Date: 20101025
  Receipt Date: 20101025
  Transmission Date: 20110411
  Serious: Yes (Hospitalization, Disabling, Other)
  Sender: FDA-Public Use
  Company Number: None

PATIENT
  Age: 57 Year
  Sex: Female
  Weight: 68.0396 kg

DRUGS (2)
  1. FOSAMAX [Suspect]
     Indication: OSTEOPOROSIS POSTMENOPAUSAL
     Dosage: 10 MG IN BEGINING DAILY PO
     Route: 048
     Dates: start: 19970103, end: 20070515
  2. FOSAMAX [Suspect]
     Dosage: 70MG WHEN WEEKLY CAME OUT WEEKLY PO
     Route: 048

REACTIONS (7)
  - CRYING [None]
  - FALL [None]
  - FEMUR FRACTURE [None]
  - LOSS OF CONSCIOUSNESS [None]
  - MEMORY IMPAIRMENT [None]
  - SCREAMING [None]
  - SHOCK [None]
